FAERS Safety Report 8821820 (Version 2)
Quarter: 2012Q4

REPORT INFORMATION
  Report Type: Report from Study
  Country: CL (occurrence: CL)
  Receive Date: 20121002
  Receipt Date: 20121012
  Transmission Date: 20130627
  Serious: Yes (Hospitalization)
  Sender: FDA-Public Use
  Company Number: CL-BRISTOL-MYERS SQUIBB COMPANY-17009937

PATIENT
  Age: 67 Year
  Sex: Male

DRUGS (10)
  1. BLINDED: IPILIMUMAB [Suspect]
     Indication: NON-SMALL CELL LUNG CANCER
     Route: 042
     Dates: start: 20120913, end: 20120913
  2. CARBOPLATIN [Suspect]
     Indication: NON-SMALL CELL LUNG CANCER
     Dosage: 1 DF: AUC 6
     Route: 042
     Dates: start: 20120802, end: 20120913
  3. PACLITAXEL [Suspect]
     Indication: NON-SMALL CELL LUNG CANCER
     Route: 042
     Dates: start: 20120802, end: 20120913
  4. BLINDED: PLACEBO [Suspect]
     Indication: NON-SMALL CELL LUNG CANCER
     Route: 042
     Dates: start: 20120913, end: 20120913
  5. AMLODIPINE [Concomitant]
  6. CLONAZEPAM [Concomitant]
  7. CONCOR [Concomitant]
  8. SPIRONOLACTONE [Concomitant]
  9. LIPITOR [Concomitant]
  10. OMEPRAZOLE [Concomitant]

REACTIONS (1)
  - Upper respiratory tract infection [Recovered/Resolved]
